FAERS Safety Report 7744477-2 (Version None)
Quarter: 2011Q3

REPORT INFORMATION
  Report Type: 
  Country: None (occurrence: None)
  Receive Date: 20110912
  Receipt Date: 20110907
  Transmission Date: 20111222
  Serious: Yes (Other)
  Sender: FDA-Public Use
  Company Number: US-PFIZER INC-2011210798

PATIENT
  Sex: Female

DRUGS (3)
  1. SYNTHROID [Concomitant]
     Indication: HYPERTHYROIDISM
     Dosage: 0.137 MG, 1X/DAY
     Route: 048
  2. LIPITOR [Suspect]
     Indication: BLOOD CHOLESTEROL ABNORMAL
     Dosage: 10 MG, 1X/DAY
     Route: 048
     Dates: start: 20110829, end: 20110901
  3. PRAVASTATIN [Suspect]
     Indication: BLOOD CHOLESTEROL ABNORMAL
     Dosage: 20 MG, 1X/DAY
     Dates: start: 20110101, end: 20110101

REACTIONS (5)
  - ARTHROPATHY [None]
  - FEELING ABNORMAL [None]
  - ARTHRALGIA [None]
  - DIZZINESS [None]
  - ABNORMAL DREAMS [None]
